FAERS Safety Report 9140065 (Version 1)
Quarter: 2013Q1

REPORT INFORMATION
  Report Type: Spontaneous
  Country: US (occurrence: US)
  Receive Date: 20130305
  Receipt Date: 20130305
  Transmission Date: 20140127
  Serious: Yes (Death, Other)
  Sender: FDA-Public Use
  Company Number: PHHY2013US020325

PATIENT
  Sex: Male

DRUGS (5)
  1. FENTANYL [Suspect]
  2. OXYCODONE / ACETAMINOPHEN [Suspect]
  3. METOPROLOL [Suspect]
  4. AMLODIPINE [Suspect]
  5. ETHANOL [Suspect]

REACTIONS (2)
  - Toxicity to various agents [Fatal]
  - Intentional overdose [Unknown]
